FAERS Safety Report 24840699 (Version 1)
Quarter: 2025Q1

REPORT INFORMATION
  Report Type: Report from Study
  Country: US (occurrence: US)
  Receive Date: 20250114
  Receipt Date: 20250114
  Transmission Date: 20250408
  Serious: Yes (Hospitalization, Other)
  Sender: PFIZER
  Company Number: US-PFIZER INC-PV202400148110

PATIENT
  Age: 83 Year
  Sex: Male

DRUGS (3)
  1. BRAFTOVI [Suspect]
     Active Substance: ENCORAFENIB
     Indication: Colon cancer
     Dosage: 300 MG, 1X/DAY
     Route: 048
     Dates: start: 20241113, end: 20241203
  2. ERBITUX [Concomitant]
     Active Substance: CETUXIMAB
     Route: 041
     Dates: start: 20241113, end: 20241203
  3. ERBITUX [Concomitant]
     Active Substance: CETUXIMAB
     Dates: start: 20250107

REACTIONS (5)
  - Pulmonary embolism [Unknown]
  - Chills [Recovered/Resolved]
  - Rash [Recovered/Resolved]
  - Cough [Recovering/Resolving]
  - Dyspnoea [Not Recovered/Not Resolved]

NARRATIVE: CASE EVENT DATE: 20240101
